FAERS Safety Report 13645453 (Version 9)
Quarter: 2025Q3

REPORT INFORMATION
  Report Type: Report from Study
  Country: US (occurrence: US)
  Receive Date: 20170612
  Receipt Date: 20250910
  Transmission Date: 20251020
  Serious: Yes (Other)
  Sender: TAKEDA
  Company Number: US-ARIAD-2016US006750

PATIENT
  Sex: Female

DRUGS (18)
  1. PONATINIB [Suspect]
     Active Substance: PONATINIB
     Indication: Chronic myeloid leukaemia
     Dosage: 15 MILLIGRAM, QD
     Dates: start: 201605
  2. PONATINIB [Suspect]
     Active Substance: PONATINIB
     Dosage: 15 MILLIGRAM, QD
  3. PHENERGAN [Concomitant]
     Active Substance: PROMETHAZINE HYDROCHLORIDE
  4. LINZESS [Concomitant]
     Active Substance: LINACLOTIDE
  5. REXULTI [Concomitant]
     Active Substance: BREXPIPRAZOLE
  6. ZOLOFT [Concomitant]
     Active Substance: SERTRALINE HYDROCHLORIDE
  7. OXYCODONE HYDROCHLORIDE [Concomitant]
     Active Substance: OXYCODONE HYDROCHLORIDE
  8. AMBIEN [Concomitant]
     Active Substance: ZOLPIDEM TARTRATE
  9. NEXIUM [Concomitant]
     Active Substance: ESOMEPRAZOLE MAGNESIUM
  10. IBUPROFEN [Concomitant]
     Active Substance: IBUPROFEN
  11. METOPROLOL TARTRATE [Concomitant]
     Active Substance: METOPROLOL TARTRATE
  12. GABAPENTIN [Concomitant]
     Active Substance: GABAPENTIN
  13. METHOCARBAMOL [Concomitant]
     Active Substance: METHOCARBAMOL
  14. METFORMIN HYDROCHLORIDE [Concomitant]
     Active Substance: METFORMIN HYDROCHLORIDE
  15. ESTRADIOL [Concomitant]
     Active Substance: ESTRADIOL
  16. OZEMPIC [Concomitant]
     Active Substance: SEMAGLUTIDE
  17. LISINOPRIL [Concomitant]
     Active Substance: LISINOPRIL
  18. LOVASTATIN [Concomitant]
     Active Substance: LOVASTATIN

REACTIONS (33)
  - Renal disorder [Unknown]
  - Pleurisy [Unknown]
  - Mouth injury [Unknown]
  - Respiratory tract infection [Not Recovered/Not Resolved]
  - Neuropathy peripheral [Not Recovered/Not Resolved]
  - Brain fog [Unknown]
  - Areflexia [Unknown]
  - Personality disorder [Unknown]
  - Memory impairment [Unknown]
  - Weight increased [Unknown]
  - Depressed mood [Unknown]
  - Anger [Unknown]
  - Dysphonia [Not Recovered/Not Resolved]
  - Sciatic nerve injury [Not Recovered/Not Resolved]
  - Visual impairment [Unknown]
  - Myalgia [Not Recovered/Not Resolved]
  - Insomnia [Not Recovered/Not Resolved]
  - Chest pain [Unknown]
  - Nausea [Unknown]
  - Headache [Unknown]
  - Neck pain [Unknown]
  - Back pain [Unknown]
  - Vomiting [Not Recovered/Not Resolved]
  - Bone pain [Not Recovered/Not Resolved]
  - Dyspepsia [Not Recovered/Not Resolved]
  - Mental disorder [Unknown]
  - Anxiety [Not Recovered/Not Resolved]
  - Depression [Not Recovered/Not Resolved]
  - Product use issue [Unknown]
  - Diarrhoea [Recovered/Resolved with Sequelae]
  - Arthralgia [Not Recovered/Not Resolved]
  - Pain [Unknown]
  - Pyrexia [Not Recovered/Not Resolved]
